FAERS Safety Report 6746719-9 (Version None)
Quarter: 2010Q2

REPORT INFORMATION
  Report Type: 
  Country: None (occurrence: None)
  Receive Date: 20100528
  Receipt Date: 20090622
  Transmission Date: 20101027
  Serious: No
  Sender: FDA-Public Use
  Company Number: A0784592A

PATIENT
  Age: 35 Year
  Sex: Female

DRUGS (3)
  1. VENTOLIN [Suspect]
     Indication: DRUG USE FOR UNKNOWN INDICATION
     Dosage: 1PUFF FOUR TIMES PER DAY
     Route: 055
     Dates: start: 20090514, end: 20090514
  2. BIRTH CONTROL [Concomitant]
  3. THYROID MEDICATION [Concomitant]

REACTIONS (4)
  - DYSPNOEA [None]
  - PARAESTHESIA ORAL [None]
  - PRURITUS [None]
  - SWELLING FACE [None]
